FAERS Safety Report 21801796 (Version 2)
Quarter: 2023Q1

REPORT INFORMATION
  Report Type: Spontaneous
  Country: US (occurrence: US)
  Receive Date: 20221230
  Receipt Date: 20230106
  Transmission Date: 20230418
  Serious: Yes (Other)
  Sender: FDA-Public Use
  Company Number: US-ALLERGAN-2242531US

PATIENT
  Age: 46 Year
  Sex: Female

DRUGS (1)
  1. QULIPTA [Suspect]
     Active Substance: ATOGEPANT
     Indication: Product used for unknown indication
     Dates: start: 20221224

REACTIONS (2)
  - Craniotomy [Unknown]
  - Migraine [Unknown]

NARRATIVE: CASE EVENT DATE: 20221201
